FAERS Safety Report 6506422-7 (Version None)
Quarter: 2009Q4

REPORT INFORMATION
  Report Type: 
  Country: None (occurrence: None)
  Receive Date: 20091221
  Receipt Date: 20091211
  Transmission Date: 20100525
  Serious: Yes (Other)
  Sender: FDA-Public Use
  Company Number: US-RB-026663-09

PATIENT
  Sex: Male

DRUGS (2)
  1. SUBOXONE [Suspect]
     Route: 060
     Dates: start: 20081101, end: 20091101
  2. VALIUM [Concomitant]
     Indication: ANXIETY
     Route: 048

REACTIONS (5)
  - ABDOMINAL PAIN UPPER [None]
  - DEHYDRATION [None]
  - LOSS OF CONSCIOUSNESS [None]
  - NAUSEA [None]
  - VOMITING [None]
